FAERS Safety Report 10144390 (Version 1)
Quarter: 2014Q2

REPORT INFORMATION
  Report Type: Spontaneous
  Country: JP (occurrence: JP)
  Receive Date: 20140430
  Receipt Date: 20140430
  Transmission Date: 20141212
  Serious: Yes (Hospitalization)
  Sender: FDA-Public Use
  Company Number: JP-MYLANLABS-2014S1009223

PATIENT
  Age: 74 Year
  Sex: Male

DRUGS (2)
  1. CARBOPLATIN [Suspect]
     Indication: SMALL CELL LUNG CANCER
     Route: 041
     Dates: start: 20140401
  2. LASTET [Suspect]
     Indication: SMALL CELL LUNG CANCER
     Route: 041
     Dates: start: 20140401, end: 20140403

REACTIONS (2)
  - Renal failure acute [Recovering/Resolving]
  - Febrile neutropenia [Recovering/Resolving]
